FAERS Safety Report 25177095 (Version 2)
Quarter: 2025Q3

REPORT INFORMATION
  Report Type: Spontaneous
  Country: US (occurrence: US)
  Receive Date: 20250409
  Receipt Date: 20250816
  Transmission Date: 20251020
  Serious: No
  Sender: ALEXION PHARMACEUTICALS
  Company Number: US-AstraZeneca-CH-00845172AM

PATIENT
  Sex: Male

DRUGS (1)
  1. ANDEXXA [Suspect]
     Active Substance: ANDEXANET ALFA
     Route: 065

REACTIONS (2)
  - Incorrect dose administered by device [Unknown]
  - Drug delivery system issue [Unknown]
